FAERS Safety Report 15547686 (Version 1)
Quarter: 2018Q4

REPORT INFORMATION
  Report Type: Spontaneous
  Country: US (occurrence: US)
  Receive Date: 20181024
  Receipt Date: 20181024
  Transmission Date: 20190205
  Serious: Yes (Hospitalization, Other)
  Sender: FDA-Public Use
  Company Number: US-JAZZ-2018-US-015277

PATIENT
  Age: 33 Year
  Sex: Male
  Weight: 132.3 kg

DRUGS (13)
  1. CLOZAPINE. [Suspect]
     Active Substance: CLOZAPINE
     Dosage: 30 MG, PER DAY
     Route: 048
  2. CLOZAPINE. [Suspect]
     Active Substance: CLOZAPINE
     Dosage: 400 MG, PER DAY
     Route: 048
  3. LORAZEPAM. [Suspect]
     Active Substance: LORAZEPAM
     Indication: CATATONIA
  4. CLOZAPINE. [Suspect]
     Active Substance: CLOZAPINE
     Indication: SCHIZOPHRENIA
     Dosage: 25 MG, PER DAY
     Route: 048
  5. CLOZAPINE. [Suspect]
     Active Substance: CLOZAPINE
     Dosage: 400 MG, PAR DAY
     Route: 048
  6. CLOZAPINE. [Suspect]
     Active Substance: CLOZAPINE
     Dosage: 700 MG, PAR DAY
     Route: 048
  7. CLOZAPINE. [Suspect]
     Active Substance: CLOZAPINE
     Dosage: 400 MG, PER DAY
     Route: 048
  8. CLOZAPINE. [Suspect]
     Active Substance: CLOZAPINE
     Dosage: 400 MG, PER DAY
     Route: 048
  9. CLOZAPINE. [Suspect]
     Active Substance: CLOZAPINE
     Dosage: 600 MG, PAR DAY
     Route: 048
  10. CLOZAPINE. [Suspect]
     Active Substance: CLOZAPINE
     Dosage: 50 MG, PER DAY
     Route: 048
  11. CLOZAPINE. [Suspect]
     Active Substance: CLOZAPINE
     Dosage: 50 MG, PER DAY
     Route: 048
  12. CLOZAPINE. [Suspect]
     Active Substance: CLOZAPINE
     Dosage: 400 MG, PER DAY
     Route: 048
  13. CLOZAPINE. [Suspect]
     Active Substance: CLOZAPINE
     Dosage: 600 MG, PAR DAY
     Route: 048

REACTIONS (10)
  - Withdrawal catatonia [Recovering/Resolving]
  - Rhabdomyolysis [Unknown]
  - Urinary incontinence [Unknown]
  - Blood chloride abnormal [Unknown]
  - Urinary tract infection [Unknown]
  - Hyperlipidaemia [Unknown]
  - Dehydration [Unknown]
  - Oedema [Unknown]
  - Weight decreased [Unknown]
  - Hypernatraemia [Unknown]

NARRATIVE: CASE EVENT DATE: 2007
